FAERS Safety Report 8247235-8 (Version None)
Quarter: 2012Q1

REPORT INFORMATION
  Report Type: 
  Country: None (occurrence: None)
  Receive Date: 20120329
  Receipt Date: 20120329
  Transmission Date: 20120608
  Serious: No
  Sender: FDA-Public Use
  Company Number: None

PATIENT
  Age: 58 Year
  Sex: Female

DRUGS (1)
  1. AZATHIOPRINE [Suspect]
     Dates: start: 20101113, end: 20101117

REACTIONS (10)
  - ALANINE AMINOTRANSFERASE INCREASED [None]
  - VOMITING [None]
  - TACHYCARDIA [None]
  - ASPARTATE AMINOTRANSFERASE INCREASED [None]
  - DIARRHOEA [None]
  - GAMMA-GLUTAMYLTRANSFERASE INCREASED [None]
  - PYREXIA [None]
  - DEHYDRATION [None]
  - PAIN [None]
  - HEPATIC STEATOSIS [None]
